FAERS Safety Report 9700561 (Version 2)
Quarter: 2013Q4

REPORT INFORMATION
  Report Type: Spontaneous
  Country: GB (occurrence: GB)
  Receive Date: 20131121
  Receipt Date: 20131121
  Transmission Date: 20140711
  Serious: Yes (Hospitalization)
  Sender: FDA-Public Use
  Company Number: PHFR2013GB005597

PATIENT
  Age: 56 Year
  Sex: Female

DRUGS (2)
  1. VENLAFAXINE [Concomitant]
     Indication: DEPRESSED MOOD
     Dosage: 75 MG, DAILY
     Route: 048
  2. CLOZARIL [Suspect]
     Indication: SCHIZOPHRENIA
     Dosage: UNK
     Route: 048
     Dates: start: 20090519

REACTIONS (2)
  - Dyspnoea [Unknown]
  - Lower respiratory tract infection [Recovered/Resolved]
